FAERS Safety Report 8152022-5 (Version None)
Quarter: 2012Q1

REPORT INFORMATION
  Report Type: 
  Country: None (occurrence: None)
  Receive Date: 20120214
  Receipt Date: 20120131
  Transmission Date: 20120608
  Serious: Yes (Hospitalization)
  Sender: FDA-Public Use
  Company Number: 1000028151

PATIENT
  Age: 79 Year
  Sex: Female

DRUGS (13)
  1. KARDEGIC (ACETYLSALICYLATE LYSINE) (ACETYLSALICYLATE LYSINE) [Concomitant]
  2. XANAX [Suspect]
  3. EFFERALGAN (PARACETAMOL) (PARACETAMOL) [Concomitant]
  4. ARANESP (DARPEPOETIN ALFA) (DARBEPOETIN ALFA) [Concomitant]
  5. LANTUS (INSULIN GLARGINE) (INSULIN GLARGINE) [Concomitant]
  6. EDUCTYL (POTASSIUM ACID TARTRATE, SODIUM BICARBONATE) (POTASSIUM ACID [Concomitant]
  7. SERESTA (OXAZEPAM) (TABLETS) SERESTA (OXAZEPAM) (TABLETS) [Suspect]
     Dosage: 50 MG (50 MG, 1 IN 1 D), ORAL
     Route: 048
  8. NEXIUM [Concomitant]
  9. LACTULOSE (LACTULOSE)(LACTULOSE) [Concomitant]
  10. ESCITALOPRAM [Suspect]
     Dosage: 1 DOSAGE FORM (1 DOSAGE FORMS,1 IN 1 D), ORAL
     Route: 048
     Dates: end: 20110923
  11. APIDRA (INSULIN GLULISINE) (INSULIN GLULISINE) [Concomitant]
  12. TIAPRIDAL (TIAPRIDE) [Suspect]
  13. FOSAVANCE (ALENDRONATE SODIUM, COLECALCIFEROL) (ALENDRONATE SODIUM, CO [Concomitant]

REACTIONS (4)
  - ABNORMAL BEHAVIOUR [None]
  - AGGRESSION [None]
  - GASTROINTESTINAL PAIN [None]
  - ABDOMINAL DISTENSION [None]
